FAERS Safety Report 4816386-X (Version None)
Quarter: 2005Q4

REPORT INFORMATION
  Report Type: 
  Country: None (occurrence: None)
  Receive Date: 20051028
  Receipt Date: 20051017
  Transmission Date: 20060501
  Serious: Yes (Disabling)
  Sender: FDA-Public Use
  Company Number: 2005143313

PATIENT
  Age: 1 Day
  Sex: Female
  Weight: 3.07 kg

DRUGS (4)
  1. ZITHROMAX [Suspect]
     Dosage: ORAL
     Route: 048
  2. CLARITHROMYCIN [Suspect]
     Indication: ANGINA PECTORIS
     Dosage: ORAL
     Route: 048
     Dates: start: 20040413, end: 20040415
  3. MALARONE [Suspect]
     Indication: ILL-DEFINED DISORDER
     Dosage: ORAL
     Route: 048
  4. AMOXICILLIN TRIHYDRATE [Concomitant]

REACTIONS (5)
  - ANAL ATRESIA [None]
  - CONGENITAL CARDIOVASCULAR ANOMALY [None]
  - DRUG EXPOSURE DURING PREGNANCY [None]
  - FALLOT'S TETRALOGY [None]
  - GASTROINTESTINAL MALFORMATION [None]
